FAERS Safety Report 8517478 (Version 3)
Quarter: 2014Q2

REPORT INFORMATION
  Report Type: Spontaneous
  Country: US (occurrence: US)
  Receive Date: 20120417
  Receipt Date: 20140522
  Transmission Date: 20141212
  Serious: No
  Sender: FDA-Public Use
  Company Number: US-ASTRAZENECA-2011SE24561

PATIENT
  Age: 58 Year
  Sex: Female
  Weight: 53.1 kg

DRUGS (2)
  1. PULMICORT RESPULES [Suspect]
     Dosage: GENERIC
     Route: 055
  2. NEXIUM [Suspect]
     Indication: GASTROOESOPHAGEAL REFLUX DISEASE
     Route: 048

REACTIONS (3)
  - Headache [Unknown]
  - Drug dose omission [Unknown]
  - Intentional product misuse [Unknown]
